FAERS Safety Report 6616175-X (Version None)
Quarter: 2010Q1

REPORT INFORMATION
  Report Type: 
  Country: None (occurrence: None)
  Receive Date: 20100305
  Receipt Date: 20100222
  Transmission Date: 20100710
  Serious: Yes (Hospitalization, Disabling, Other)
  Sender: FDA-Public Use
  Company Number: US-PFIZER INC-2009208845

PATIENT
  Sex: Male
  Weight: 86.168 kg

DRUGS (18)
  1. LYRICA [Suspect]
     Indication: NEUROPATHY PERIPHERAL
     Dosage: 75 MG, 2X/DAY
     Route: 048
     Dates: start: 20070101, end: 20090701
  2. LYRICA [Suspect]
     Indication: DIABETIC NEUROPATHY
  3. ATIVAN [Concomitant]
     Dosage: UNK
  4. ASPIRIN [Concomitant]
     Dosage: UNK
  5. PLETAL [Concomitant]
     Dosage: UNK
  6. PEPCID [Concomitant]
     Dosage: UNK
  7. LASIX [Concomitant]
     Dosage: UNK
  8. HYDRALAZINE [Concomitant]
     Dosage: UNK
  9. LOPRESSOR [Concomitant]
     Dosage: UNK
  10. PLAVIX [Concomitant]
     Dosage: UNK
  11. COMBIVENT [Concomitant]
     Dosage: UNK
  12. CARDIZEM [Concomitant]
     Dosage: 60 MG, 4X/DAY
  13. LIDODERM [Concomitant]
     Dosage: UNK
  14. METHADONE [Concomitant]
     Dosage: UNK
  15. SENOKOT [Concomitant]
     Dosage: UNK
  16. ALDACTONE [Concomitant]
     Dosage: UNK
  17. VICODIN ES [Concomitant]
     Dosage: UNK
  18. TOPAMAX [Concomitant]
     Dosage: UNK

REACTIONS (4)
  - ARTERIAL THERAPEUTIC PROCEDURE [None]
  - CEREBROVASCULAR ACCIDENT [None]
  - CONFUSIONAL STATE [None]
  - FALL [None]
